FAERS Safety Report 9903243 (Version 2)
Quarter: 2014Q1

REPORT INFORMATION
  Report Type: Spontaneous
  Country: US (occurrence: US)
  Receive Date: 20140217
  Receipt Date: 20140217
  Transmission Date: 20141002
  Serious: No
  Sender: FDA-Public Use
  Company Number: US-ASTRAZENECA-2013SE65918

PATIENT
  Age: 64 Year
  Sex: Male
  Weight: 108.9 kg

DRUGS (3)
  1. ATENOLOL [Suspect]
     Indication: HYPERTENSION
     Route: 048
     Dates: start: 201308
  2. SYMBICORT [Suspect]
     Indication: CHRONIC OBSTRUCTIVE PULMONARY DISEASE
     Dosage: 2 PUFFS 160 4.5 BID
     Route: 055
     Dates: start: 20130824
  3. BENAZEPRIL HYDROCHLORIDE [Concomitant]
     Indication: HYPERTENSION
     Dates: start: 201308

REACTIONS (5)
  - Dyspnoea [Recovering/Resolving]
  - Chronic obstructive pulmonary disease [Recovering/Resolving]
  - Incorrect product storage [Not Recovered/Not Resolved]
  - Circumstance or information capable of leading to medication error [Recovered/Resolved]
  - Drug dose omission [Recovered/Resolved]
